FAERS Safety Report 24284145 (Version 1)
Quarter: 2024Q3

REPORT INFORMATION
  Report Type: Report from Study
  Country: US (occurrence: US)
  Receive Date: 20240905
  Receipt Date: 20240905
  Transmission Date: 20241016
  Serious: Yes (Other)
  Sender: JOHNSON AND JOHNSON
  Company Number: US-JNJFOC-20240877793

PATIENT
  Age: 37 Year
  Sex: Female

DRUGS (8)
  1. SPRAVATO [Suspect]
     Active Substance: ESKETAMINE
     Indication: Depression
     Dosage: 1 TOTAL DOSE
     Dates: start: 20220202, end: 20220202
  2. SPRAVATO [Suspect]
     Active Substance: ESKETAMINE
     Dosage: 6 TOTAL DOSES
     Dates: start: 20230110, end: 20230131
  3. SPRAVATO [Suspect]
     Active Substance: ESKETAMINE
     Dosage: ^56 MG, 1 TOTAL DOSE^
     Dates: start: 20240717, end: 20240717
  4. SPRAVATO [Suspect]
     Active Substance: ESKETAMINE
     Dosage: ^84 MG, 8 TOTAL DOSES^ PATIENT HAD RECENT DOSE ON 29-AUG-2024
     Dates: start: 20240719, end: 20240820
  5. CYANOCOBALAMIN [Concomitant]
     Active Substance: CYANOCOBALAMIN
     Route: 065
  6. MOBIC [Concomitant]
     Active Substance: MELOXICAM
     Dosage: MOBIC 15
     Route: 065
  7. PREDNISONE [Concomitant]
     Active Substance: PREDNISONE
     Dosage: A PACK
     Route: 065
  8. KEPPRA [Concomitant]
     Active Substance: LEVETIRACETAM
     Dosage: EXTENDED RELEASE
     Route: 065

REACTIONS (2)
  - Seizure [Unknown]
  - Arthropathy [Unknown]

NARRATIVE: CASE EVENT DATE: 20240801
